FAERS Safety Report 9447872 (Version 1)
Quarter: 2013Q3

REPORT INFORMATION
  Report Type: Spontaneous
  Country: PL (occurrence: PL)
  Receive Date: 20130808
  Receipt Date: 20130808
  Transmission Date: 20140515
  Serious: Yes (Other)
  Sender: FDA-Public Use
  Company Number: PL-SANOFI-AVENTIS-2013SA078991

PATIENT
  Age: 47 Year
  Sex: Female

DRUGS (10)
  1. CHLOROQUINE (SALT NOT SPECIFIED) [Suspect]
     Indication: SYSTEMIC LUPUS ERYTHEMATOSUS
     Route: 065
  2. HYDROXYCHLOROQUINE SULFATE [Suspect]
     Indication: SYSTEMIC LUPUS ERYTHEMATOSUS
     Route: 065
  3. MYCOPHENOLATE MOFETIL [Suspect]
     Indication: SYSTEMIC LUPUS ERYTHEMATOSUS
     Dosage: 1-2 G
     Route: 065
  4. PREDNISONE [Concomitant]
     Indication: SYSTEMIC LUPUS ERYTHEMATOSUS
  5. PREDNISONE [Concomitant]
     Indication: SYSTEMIC LUPUS ERYTHEMATOSUS
  6. CYCLOPHOSPHAMIDE [Concomitant]
     Indication: SYSTEMIC LUPUS ERYTHEMATOSUS
     Dates: end: 201104
  7. CORTICOSTEROIDS [Concomitant]
     Indication: SYSTEMIC LUPUS ERYTHEMATOSUS
     Route: 042
  8. IMMUNOGLOBULIN [Concomitant]
     Indication: SYSTEMIC LUPUS ERYTHEMATOSUS
  9. ENOXAPARIN [Concomitant]
     Indication: ANTICOAGULANT THERAPY
  10. WARFARIN [Concomitant]
     Indication: ANTICOAGULANT THERAPY

REACTIONS (3)
  - Urosepsis [Unknown]
  - Herpes zoster [Unknown]
  - Off label use [Unknown]
